FAERS Safety Report 8285831-2 (Version None)
Quarter: 2012Q2

REPORT INFORMATION
  Report Type: 
  Country: None (occurrence: None)
  Receive Date: 20120413
  Receipt Date: 20120403
  Transmission Date: 20120825
  Serious: Yes (Other)
  Sender: FDA-Public Use
  Company Number: US-ELI_LILLY_AND_COMPANY-US201203005237

PATIENT
  Sex: Female

DRUGS (1)
  1. FORTEO [Suspect]
     Indication: OSTEOPOROSIS
     Dosage: 20 UG, QD
     Route: 065

REACTIONS (7)
  - FALL [None]
  - INSOMNIA [None]
  - PELVIC PAIN [None]
  - PELVIC FRACTURE [None]
  - WRIST FRACTURE [None]
  - MUSCLE SPASMS [None]
  - BLOOD CALCIUM INCREASED [None]
